FAERS Safety Report 15769975 (Version 1)
Quarter: 2018Q4

REPORT INFORMATION
  Report Type: Spontaneous
  Country: NL (occurrence: NL)
  Receive Date: 20181228
  Receipt Date: 20181228
  Transmission Date: 20190205
  Serious: Yes (Life-Threatening)
  Sender: FDA-Public Use
  Company Number: NL-ACCORD-097861

PATIENT
  Age: 66 Year
  Sex: Female
  Weight: 70 kg

DRUGS (11)
  1. TIMOGEL [Concomitant]
     Active Substance: TIMOLOL MALEATE
     Dosage: ONE TIME A DAY
  2. GEMCITABINE [Concomitant]
     Active Substance: GEMCITABINE\GEMCITABINE HYDROCHLORIDE
     Indication: OVARIAN CANCER
     Dates: start: 20180912
  3. PRAMIPEXOLE/PRAMIPEXOLE DIHYDROCHLORIDE [Concomitant]
     Dosage: ONE TIME A DAY 1 TABLET?STRENGTH: 0.125 MG
     Route: 048
  4. ABSTRAL [Concomitant]
     Active Substance: FENTANYL CITRATE
     Dosage: IF NEEDED 1 TIME A DAY 1 TABLET?STRENGTH: 100 MCG
     Route: 060
  5. NIFEDIPINE RET MGA [Concomitant]
     Dosage: ONE TIME A DAY 1 TABLET?STRENGTH: 30 MG
     Route: 048
  6. CARBOPLATIN ACCORD [Suspect]
     Active Substance: CARBOPLATIN
     Indication: OVARIAN CANCER
     Dosage: (NOT DAILY)
     Route: 042
     Dates: start: 20180912
  7. DEXAMETHASONE. [Concomitant]
     Active Substance: DEXAMETHASONE
     Dosage: ACCORDING TO DOCTORS PRESCRIPTION 2 TABLETS?STRENGTH: 4 MG
     Route: 048
  8. FENTANYL. [Concomitant]
     Active Substance: FENTANYL
     Dosage: EVERY 3 DAYS ONE PLASTER?STRENGTH: 12 MCG/H
  9. EMEND [Concomitant]
     Active Substance: APREPITANT
     Dosage: ACCORDING TO DOCTORS^ PRESCRIPTION?STRENGTH: 1X125/2X80MG
     Route: 048
  10. METOCLOPRAMIDE. [Concomitant]
     Active Substance: METOCLOPRAMIDE
     Dosage: IF NEEDED 3 TIMES A DAY 1 TABLET
     Route: 048
  11. THIAMAZOLE [Concomitant]
     Active Substance: METHIMAZOLE
     Dosage: ONE TIME A DAY?DOSE: 0.5 (UNIT UNSPECIFIED)?STRENGTH: 10 MG
     Route: 048

REACTIONS (7)
  - Feeling abnormal [Recovered/Resolved]
  - Dyspnoea [Recovered/Resolved]
  - Pruritus [Recovered/Resolved]
  - Hypertension [Recovered/Resolved]
  - Rash [Recovered/Resolved]
  - Erythema [Recovered/Resolved]
  - Swollen tongue [Recovered/Resolved]

NARRATIVE: CASE EVENT DATE: 20181031
